FAERS Safety Report 9910233 (Version 1)
Quarter: 2014Q1

REPORT INFORMATION
  Report Type: Spontaneous
  Country: US (occurrence: US)
  Receive Date: 20140219
  Receipt Date: 20140219
  Transmission Date: 20141002
  Serious: No
  Sender: FDA-Public Use
  Company Number: US-LUNDBECK-DKLU1096842

PATIENT
  Sex: Female

DRUGS (3)
  1. SABRIL (TABLET) [Suspect]
     Indication: TONIC CONVULSION
     Route: 048
     Dates: start: 20100225
  2. LAMICTAL [Concomitant]
     Indication: PRODUCT USED FOR UNKNOWN INDICATION
  3. PHENOBARBITAL [Concomitant]
     Indication: PRODUCT USED FOR UNKNOWN INDICATION

REACTIONS (3)
  - Pyrexia [Recovered/Resolved]
  - Vomiting [Unknown]
  - Incorrect dosage administered [Unknown]
